FAERS Safety Report 6802260-6 (Version None)
Quarter: 2010Q2

REPORT INFORMATION
  Report Type: 
  Country: None (occurrence: None)
  Receive Date: 20100628
  Receipt Date: 20100617
  Transmission Date: 20101027
  Serious: Yes (Hospitalization)
  Sender: FDA-Public Use
  Company Number: JP-BIOGENIDEC-2008BI014977

PATIENT
  Age: 41 Year
  Sex: Female

DRUGS (48)
  1. AVONEX [Suspect]
     Indication: RELAPSING-REMITTING MULTIPLE SCLEROSIS
     Route: 030
     Dates: start: 20080517, end: 20080517
  2. AVONEX [Suspect]
     Route: 030
     Dates: start: 20080814
  3. PREDNISOLONE [Concomitant]
     Indication: RELAPSING-REMITTING MULTIPLE SCLEROSIS
     Route: 048
     Dates: start: 20080501, end: 20080501
  4. PREDNISOLONE [Concomitant]
     Route: 048
     Dates: start: 20080521, end: 20080522
  5. PREDNISOLONE [Concomitant]
     Route: 048
     Dates: start: 20080523, end: 20080523
  6. PREDNISOLONE [Concomitant]
     Route: 048
     Dates: start: 20080524, end: 20080524
  7. PREDNISOLONE [Concomitant]
     Route: 048
     Dates: start: 20080525, end: 20080525
  8. PREDNISOLONE [Concomitant]
     Route: 048
     Dates: start: 20080526, end: 20080526
  9. PREDNISOLONE [Concomitant]
     Route: 048
     Dates: start: 20080527, end: 20080527
  10. PREDNISOLONE [Concomitant]
     Route: 048
     Dates: start: 20081116, end: 20081124
  11. PREDNISOLONE [Concomitant]
     Route: 048
     Dates: start: 20081125, end: 20081201
  12. PREDNISOLONE [Concomitant]
     Route: 048
     Dates: start: 20081202, end: 20081208
  13. PREDNISOLONE [Concomitant]
     Route: 048
     Dates: start: 20081209, end: 20081215
  14. PREDNISOLONE [Concomitant]
     Route: 048
     Dates: start: 20081216, end: 20081222
  15. PREDNISOLONE [Concomitant]
     Route: 048
     Dates: start: 20081223, end: 20081229
  16. PREDNISOLONE [Concomitant]
     Route: 048
     Dates: start: 20081230, end: 20090105
  17. PREDNISOLONE [Concomitant]
     Route: 048
     Dates: start: 20090106, end: 20090112
  18. PREDNISOLONE [Concomitant]
     Route: 048
     Dates: start: 20090113, end: 20090125
  19. PREDNISOLONE [Concomitant]
     Route: 048
     Dates: start: 20091002, end: 20091005
  20. PREDNISOLONE [Concomitant]
     Route: 048
     Dates: start: 20091006, end: 20091012
  21. PREDNISOLONE [Concomitant]
     Route: 048
     Dates: start: 20091013, end: 20091019
  22. PREDNISOLONE [Concomitant]
     Route: 048
     Dates: start: 20091020, end: 20091026
  23. PREDNISOLONE [Concomitant]
     Route: 048
     Dates: start: 20091027, end: 20091102
  24. TIZANIDINE HCL [Concomitant]
     Dates: start: 19991001, end: 20080526
  25. TIZANIDINE HCL [Concomitant]
     Dates: start: 20080625, end: 20080811
  26. TIZANIDINE HCL [Concomitant]
     Dates: start: 20080930
  27. UBRETID [Concomitant]
     Dates: start: 20060113, end: 20080526
  28. UBRETID [Concomitant]
     Dates: start: 20080612, end: 20080626
  29. UBRETID [Concomitant]
     Dates: start: 20080627, end: 20080726
  30. MARZULENE [Concomitant]
     Dates: start: 19990101, end: 20080526
  31. PROTECADIN [Concomitant]
     Dates: start: 20011116, end: 20080526
  32. ALFAROL [Concomitant]
     Dates: start: 20000914, end: 20080526
  33. ALFAROL [Concomitant]
     Dates: start: 20081202, end: 20090125
  34. MAGNESIUM OXIDE [Concomitant]
     Dates: start: 20020601, end: 20080526
  35. MAGNESIUM OXIDE [Concomitant]
     Dates: start: 20080707, end: 20080730
  36. LIPITOR [Concomitant]
     Dates: start: 20030529, end: 20080520
  37. LIPITOR [Concomitant]
     Dates: start: 20090107
  38. GASTER D [Concomitant]
     Dates: start: 20080811
  39. ENSURE LIQUID (PARENTERAL NUTRITION) [Concomitant]
     Dates: start: 20081106
  40. LOPEMIN [Concomitant]
     Dates: start: 20090624, end: 20090705
  41. FLOMOX [Concomitant]
     Dates: start: 20090710, end: 20090713
  42. LOXONIN [Concomitant]
     Dates: start: 20090710, end: 20090713
  43. LOPEMIN [Concomitant]
     Dates: start: 20090727, end: 20090809
  44. LAC-B [Concomitant]
     Dates: start: 20090727, end: 20090809
  45. ADSORBIN [Concomitant]
     Dates: start: 20090727, end: 20090809
  46. MUCODYNE [Concomitant]
     Dates: start: 20090820, end: 20090823
  47. SAWACILLIN [Concomitant]
     Dates: start: 20090820, end: 20090823
  48. FIRSTCIN [Concomitant]
     Dates: start: 20090829, end: 20090831

REACTIONS (10)
  - ALANINE AMINOTRANSFERASE INCREASED [None]
  - ASPARTATE AMINOTRANSFERASE INCREASED [None]
  - BLOOD ALKALINE PHOSPHATASE INCREASED [None]
  - BLOOD BILIRUBIN INCREASED [None]
  - BLOOD LACTATE DEHYDROGENASE INCREASED [None]
  - CONDITION AGGRAVATED [None]
  - GAMMA-GLUTAMYLTRANSFERASE INCREASED [None]
  - LIVER DISORDER [None]
  - MULTIPLE SCLEROSIS RELAPSE [None]
  - PYREXIA [None]
